FAERS Safety Report 5318834-8 (Version None)
Quarter: 2007Q2

REPORT INFORMATION
  Report Type: 
  Country: None (occurrence: None)
  Receive Date: 20070508
  Receipt Date: 20070426
  Transmission Date: 20071010
  Serious: Yes (Hospitalization, Other)
  Sender: FDA-Public Use
  Company Number: US-AVENTIS-200712574US

PATIENT
  Age: 56 Year
  Sex: Male

DRUGS (5)
  1. LANTUS [Suspect]
     Dates: start: 20070101
  2. OPTICLIK (INSULIN INJECTION PEN) [Suspect]
  3. NOVOLOG [Concomitant]
     Dosage: DOSE: UNK
  4. NOVOLOG MIX 70/30 [Concomitant]
     Dosage: DOSE: UNK
  5. AMBIEN [Concomitant]
     Dosage: DOSE: UNK

REACTIONS (15)
  - CHEST PAIN [None]
  - COUGH [None]
  - DYSPNOEA [None]
  - FEELING ABNORMAL [None]
  - FEELING HOT [None]
  - HEADACHE [None]
  - HYPERGLYCAEMIA [None]
  - INJECTION SITE IRRITATION [None]
  - MALAISE [None]
  - MEDICATION ERROR [None]
  - NAUSEA [None]
  - PALPITATIONS [None]
  - PANIC ATTACK [None]
  - RETCHING [None]
  - VOMITING [None]
